FAERS Safety Report 10699192 (Version 1)
Quarter: 2015Q1

REPORT INFORMATION
  Report Type: Spontaneous
  Country: US (occurrence: US)
  Receive Date: 20150108
  Receipt Date: 20150108
  Transmission Date: 20150721
  Serious: No
  Sender: FDA-Public Use
  Company Number: US-ELI_LILLY_AND_COMPANY-US201412007366

PATIENT
  Sex: Female

DRUGS (2)
  1. FORTEO [Suspect]
     Active Substance: TERIPARATIDE
     Indication: OSTEOPOROSIS
     Dosage: UNK, QD
     Route: 058
     Dates: start: 2014
  2. FORTEO [Suspect]
     Active Substance: TERIPARATIDE
     Dosage: UNK, QOD
     Route: 058

REACTIONS (2)
  - Drug prescribing error [Unknown]
  - Diarrhoea [Recovered/Resolved]
